FAERS Safety Report 7557783-1 (Version None)
Quarter: 2011Q2

REPORT INFORMATION
  Report Type: 
  Country: None (occurrence: None)
  Receive Date: 20110620
  Receipt Date: 20110615
  Transmission Date: 20111010
  Serious: Yes (Other)
  Sender: FDA-Public Use
  Company Number: US-PFIZER INC-2011131227

PATIENT
  Sex: Male

DRUGS (7)
  1. XANAX [Concomitant]
     Indication: ANXIETY
     Dosage: UNK
  2. LORTAB [Concomitant]
     Indication: LIVER OPERATION
     Dosage: UNK
  3. CHAPSTICK LIPMOISTURIZER [Suspect]
     Indication: CHEILITIS
     Dosage: UNK
  4. COLACE [Concomitant]
     Indication: LIVER OPERATION
     Dosage: UNK
  5. AMLODIPINE BESILATE [Concomitant]
     Indication: BLOOD PRESSURE ABNORMAL
     Dosage: UNK
  6. MULTIVITAMINS AND IRON [Suspect]
     Dosage: UNK
     Dates: start: 20110614
  7. LISINOPRIL [Concomitant]
     Indication: BLOOD PRESSURE ABNORMAL
     Dosage: UNK

REACTIONS (2)
  - APPLICATION SITE OEDEMA [None]
  - OEDEMA MOUTH [None]
